FAERS Safety Report 9414773 (Version 1)
Quarter: 2013Q3

REPORT INFORMATION
  Report Type: Spontaneous
  Country: GB (occurrence: GB)
  Receive Date: 20130723
  Receipt Date: 20130723
  Transmission Date: 20140515
  Serious: Yes (Other)
  Sender: FDA-Public Use
  Company Number: GB-PFIZER INC-2013211383

PATIENT
  Age: 43 Year
  Sex: Male

DRUGS (4)
  1. PREGABALIN [Suspect]
     Indication: FACIAL PAIN
     Dosage: 300 MG
     Route: 048
  2. PREGABALIN [Suspect]
     Dosage: 100MG
     Route: 048
  3. PREGABALIN [Suspect]
     Dosage: 50 MG
     Route: 048
  4. METHADONE [Concomitant]

REACTIONS (2)
  - Withdrawal syndrome [Unknown]
  - Intentional drug misuse [Unknown]
